FAERS Safety Report 21020719 (Version 4)
Quarter: 2022Q3

REPORT INFORMATION
  Report Type: Report from Study
  Country: CA (occurrence: CA)
  Receive Date: 20220629
  Receipt Date: 20220912
  Transmission Date: 20221027
  Serious: No
  Sender: FDA-Public Use
  Company Number: CA-ABBVIE-22K-028-4442290-00

PATIENT
  Age: 73 Year
  Sex: Female

DRUGS (2)
  1. RINVOQ [Suspect]
     Active Substance: UPADACITINIB
     Indication: Psoriatic arthropathy
     Route: 048
     Dates: start: 20220607, end: 202206
  2. RINVOQ [Suspect]
     Active Substance: UPADACITINIB
     Route: 048

REACTIONS (5)
  - Dyspnoea exertional [Not Recovered/Not Resolved]
  - Exophthalmos [Unknown]
  - Headache [Unknown]
  - Psoriatic arthropathy [Unknown]
  - Cough [Unknown]

NARRATIVE: CASE EVENT DATE: 20220601
